FAERS Safety Report 19788935 (Version 1)
Quarter: 2021Q3

REPORT INFORMATION
  Report Type: Spontaneous
  Country: DE (occurrence: DE)
  Receive Date: 20210904
  Receipt Date: 20210904
  Transmission Date: 20211014
  Serious: Yes (Other)
  Sender: FDA-Public Use
  Company Number: NVSC2021DE118593

PATIENT
  Age: 80 Year
  Sex: Female
  Weight: 45 kg

DRUGS (8)
  1. ERELZI [Suspect]
     Active Substance: ETANERCEPT-SZZS
     Indication: RHEUMATIC DISORDER
     Dosage: 1 DF, QW
     Route: 065
     Dates: start: 202002, end: 202010
  2. PARACETAMOL [Concomitant]
     Active Substance: ACETAMINOPHEN
     Indication: PRODUCT USED FOR UNKNOWN INDICATION
     Dosage: 500 MG, Q12H (1?0?1)
     Route: 065
     Dates: start: 20201214
  3. PREDNISOLON [Concomitant]
     Active Substance: PREDNISOLONE
     Indication: RHEUMATIC DISORDER
     Dosage: 7.5 MG, QD
     Route: 065
     Dates: start: 2017
  4. NISITA [Concomitant]
     Indication: PRODUCT USED FOR UNKNOWN INDICATION
     Dosage: UNK
     Route: 065
  5. PALEXIA [Concomitant]
     Active Substance: TAPENTADOL HYDROCHLORIDE
     Indication: HIP SURGERY
     Dosage: 50 MG, Q12H (1?0?1)
     Route: 065
     Dates: start: 20201214
  6. PANTOPRAZOLE [Concomitant]
     Active Substance: PANTOPRAZOLE
     Indication: PRODUCT USED FOR UNKNOWN INDICATION
     Dosage: 40 MG, QD (1?0?0)
     Route: 065
     Dates: start: 20201214
  7. ARTELAC [Concomitant]
     Indication: EYE OPERATION
     Dosage: QD (3X/TAG 1 TRPF./PRO AUGE)
     Route: 047
     Dates: start: 20181008
  8. BUDESONID [Concomitant]
     Active Substance: BUDESONIDE
     Indication: ASTHMA
     Dosage: 0.2 MG, QD
     Route: 065

REACTIONS (4)
  - Rectal neoplasm [Unknown]
  - Vulval cancer recurrent [Unknown]
  - Urinary tract infection [Recovered/Resolved with Sequelae]
  - Vaginal neoplasm [Unknown]

NARRATIVE: CASE EVENT DATE: 2020
